FAERS Safety Report 12218341 (Version 1)
Quarter: 2016Q1

REPORT INFORMATION
  Report Type: Report from Study
  Country: US (occurrence: US)
  Receive Date: 20160329
  Receipt Date: 20160329
  Transmission Date: 20160526
  Serious: Yes (Hospitalization)
  Sender: FDA-Public Use
  Company Number: US-SA-2015SA152668

PATIENT
  Age: 72 Year
  Sex: Female
  Weight: 80.73 kg

DRUGS (15)
  1. MISOPROSTOL. [Concomitant]
     Active Substance: MISOPROSTOL
  2. ALIROCUMAB PREFILLED PEN [Concomitant]
     Active Substance: ALIROCUMAB
     Indication: TYPE V HYPERLIPIDAEMIA
     Dates: start: 20150922, end: 20151215
  3. DICLOFENAC SODIUM. [Concomitant]
     Active Substance: DICLOFENAC SODIUM
     Indication: ARTHRITIS
     Dates: start: 1998
  4. FUROSEMIDE. [Concomitant]
     Active Substance: FUROSEMIDE
     Indication: SWELLING
  5. PRALUENT [Suspect]
     Active Substance: ALIROCUMAB
     Indication: TYPE IIA HYPERLIPIDAEMIA
     Dosage: FREQUENCY IS 2X MONTHLY
     Route: 058
     Dates: start: 20150922, end: 20151215
  6. ALIROCUMAB PREFILLED PEN [Concomitant]
     Active Substance: ALIROCUMAB
     Indication: TYPE IIA HYPERLIPIDAEMIA
     Dates: start: 20150922, end: 20151215
  7. BABY ASPIRIN [Concomitant]
     Active Substance: ASPIRIN
     Indication: ANTICOAGULANT THERAPY
     Dates: start: 2014
  8. PRALUENT [Suspect]
     Active Substance: ALIROCUMAB
     Indication: TYPE V HYPERLIPIDAEMIA
     Dosage: FREQUENCY IS 2X MONTHLY
     Route: 058
     Dates: start: 20150922, end: 20151215
  9. PANTHENOL/RETINOL/THIAMINE HYDROCHLORIDE/ASCORBIC ACID/ERGOCALCIFEROL/FOLIC ACID/RIBOFLAVIN/NICOTINA [Concomitant]
     Indication: ROUTINE HEALTH MAINTENANCE
  10. NEOSPORIN [Concomitant]
     Active Substance: BACITRACIN ZINC\NEOMYCIN SULFATE\POLYMYXIN B SULFATE
     Dosage: APPLY ON TO SKIN
  11. PRALUENT [Suspect]
     Active Substance: ALIROCUMAB
     Indication: BLOOD CHOLESTEROL INCREASED
     Dosage: FREQUENCY IS 2X MONTHLY
     Route: 058
     Dates: start: 20150922, end: 20151215
  12. VITAMIN D3 [Concomitant]
     Active Substance: CHOLECALCIFEROL
     Indication: ROUTINE HEALTH MAINTENANCE
  13. PRALUENT [Suspect]
     Active Substance: ALIROCUMAB
     Indication: DRUG HYPERSENSITIVITY
     Dosage: FREQUENCY IS 2X MONTHLY
     Route: 058
     Dates: start: 20150922, end: 20151215
  14. ALIROCUMAB PREFILLED PEN [Concomitant]
     Active Substance: ALIROCUMAB
     Indication: DRUG HYPERSENSITIVITY
     Dates: start: 20150922, end: 20151215
  15. AUBAGIO [Concomitant]
     Active Substance: TERIFLUNOMIDE
     Indication: HYPERLIPIDAEMIA
     Dates: start: 20151103, end: 20151215

REACTIONS (20)
  - Fatigue [Recovered/Resolved]
  - Amnesia [Recovered/Resolved]
  - Depression [Recovered/Resolved]
  - Crying [Recovered/Resolved]
  - Palpitations [Unknown]
  - Amnesia [Unknown]
  - Swelling [Not Recovered/Not Resolved]
  - Urinary incontinence [Unknown]
  - Arthralgia [Recovered/Resolved]
  - Myalgia [Not Recovered/Not Resolved]
  - Daydreaming [Not Recovered/Not Resolved]
  - Dyspnoea [Not Recovered/Not Resolved]
  - Muscular weakness [Unknown]
  - Pain [Not Recovered/Not Resolved]
  - Ligament pain [Unknown]
  - Social avoidant behaviour [Recovered/Resolved]
  - Hot flush [Recovered/Resolved]
  - Disturbance in attention [Recovered/Resolved]
  - Insomnia [Recovered/Resolved]
  - Malaise [Unknown]

NARRATIVE: CASE EVENT DATE: 2015
